FAERS Safety Report 14482834 (Version 1)
Quarter: 2018Q1

REPORT INFORMATION
  Report Type: Spontaneous
  Country: US (occurrence: US)
  Receive Date: 20180203
  Receipt Date: 20180203
  Transmission Date: 20180509
  Serious: Yes (Hospitalization)
  Sender: FDA-Public Use
  Company Number: US-NOVITIUM PHARMA LLC-2018-US-000009

PATIENT

DRUGS (1)
  1. OXYBUTYNIN. [Suspect]
     Active Substance: OXYBUTYNIN CHLORIDE
     Indication: HYPERHIDROSIS
     Dosage: 1 G TO EACH AXILLA EVERY MORNING
     Route: 061

REACTIONS (2)
  - Off label use [Recovered/Resolved]
  - Pyelonephritis [Recovered/Resolved]
